FAERS Safety Report 7236822-1 (Version None)
Quarter: 2011Q1

REPORT INFORMATION
  Report Type: 
  Country: None (occurrence: None)
  Receive Date: 20110120
  Receipt Date: 20100429
  Transmission Date: 20110831
  Serious: Yes (Other)
  Sender: FDA-Public Use
  Company Number: BR-GENENTECH-277907

PATIENT
  Sex: Female
  Weight: 63.8 kg

DRUGS (4)
  1. PREDNISONE [Concomitant]
     Indication: PRODUCT USED FOR UNKNOWN INDICATION
  2. ARAVA [Suspect]
     Indication: RHEUMATOID ARTHRITIS
     Dosage: 8 MG/KG, UNK
     Route: 042
     Dates: start: 20100110
  3. MABTHERA [Suspect]
     Indication: POLYMYOSITIS
     Dosage: UNK
     Route: 065
     Dates: start: 20070301
  4. CALCIUM/VITAMIN D [Concomitant]
     Indication: PRODUCT USED FOR UNKNOWN INDICATION
     Dosage: 1 TABLET, QD

REACTIONS (12)
  - NASOPHARYNGITIS [None]
  - URTICARIA [None]
  - RHINITIS ALLERGIC [None]
  - EYE SWELLING [None]
  - THROAT IRRITATION [None]
  - SKIN ATROPHY [None]
  - STRESS [None]
  - HYPERAESTHESIA [None]
  - SKIN INJURY [None]
  - PEPTIC ULCER [None]
  - PHARYNGEAL OEDEMA [None]
  - SKIN CHAPPED [None]
